FAERS Safety Report 5144918-3 (Version None)
Quarter: 2006Q4

REPORT INFORMATION
  Report Type: 
  Country: None (occurrence: None)
  Receive Date: 20061107
  Receipt Date: 20061030
  Transmission Date: 20070319
  Serious: Yes (Death, Life-Threatening, Hospitalization, Other)
  Sender: FDA-Public Use
  Company Number: 2006GB01943

PATIENT
  Age: 85 Year
  Sex: Male

DRUGS (9)
  1. OMEPRAZOLE [Suspect]
     Route: 048
     Dates: start: 20060915, end: 20060920
  2. CODEINE [Concomitant]
     Route: 048
     Dates: start: 20060911
  3. HYPROMELLOSE [Concomitant]
     Route: 047
  4. METOCLOPRAMIDE [Concomitant]
     Route: 048
     Dates: start: 20060915, end: 20060919
  5. ORAMORPH SR [Concomitant]
     Route: 048
     Dates: start: 20060919
  6. ACETAMINOPHEN [Concomitant]
     Route: 048
     Dates: start: 20060911
  7. SANDO-K [Concomitant]
     Route: 048
     Dates: start: 20060914
  8. CALOGEN [Concomitant]
     Route: 048
     Dates: start: 20060912
  9. BUILDUP [Concomitant]
     Route: 048
     Dates: start: 20060912

REACTIONS (4)
  - BLISTER [None]
  - RASH [None]
  - SKIN EXFOLIATION [None]
  - SKIN NECROSIS [None]
